FAERS Safety Report 6155794-4 (Version None)
Quarter: 2009Q2

REPORT INFORMATION
  Report Type: 
  Country: None (occurrence: None)
  Receive Date: 20090415
  Receipt Date: 20090408
  Transmission Date: 20091009
  Serious: Yes (Other)
  Sender: FDA-Public Use
  Company Number: PHHY2008JP16920

PATIENT
  Age: 75 Year
  Sex: Male

DRUGS (8)
  1. EXJADE [Suspect]
     Indication: IRON OVERLOAD
     Dosage: 1000 MG, QD
     Route: 048
     Dates: start: 20080702, end: 20080713
  2. NITOROL [Concomitant]
     Dosage: 40 MG, UNK
     Route: 048
     Dates: start: 19960101
  3. DISOPYRAMIDE [Concomitant]
     Dosage: 300 MG, UNK
     Route: 048
     Dates: start: 19960101
  4. TAKEPRON [Concomitant]
     Dosage: 30 MG, UNK
     Route: 048
     Dates: start: 19960101
  5. SELBEX [Concomitant]
     Dosage: 150 MG, UNK
     Route: 048
     Dates: start: 20061004
  6. MAGMITT [Concomitant]
     Dosage: 990 MG, UNK
     Route: 048
     Dates: start: 20061227
  7. ALOSENN [Concomitant]
     Dosage: 1.0 G, UNK
     Route: 048
     Dates: start: 20071121
  8. PRIMPERAN [Concomitant]
     Dosage: 15 MG, UNK
     Route: 048
     Dates: start: 20070627

REACTIONS (5)
  - ANOREXIA [None]
  - C-REACTIVE PROTEIN INCREASED [None]
  - INFECTION [None]
  - PYREXIA [None]
  - RASH GENERALISED [None]
